FAERS Safety Report 16121079 (Version 1)
Quarter: 2019Q1

REPORT INFORMATION
  Report Type: Report from Study
  Country: CO (occurrence: CO)
  Receive Date: 20190327
  Receipt Date: 20190327
  Transmission Date: 20190418
  Serious: Yes (Hospitalization)
  Sender: FDA-Public Use
  Company Number: CO-ASTELLAS-2019US012905

PATIENT
  Age: 25 Year
  Sex: Male

DRUGS (1)
  1. TACROLIMUS. [Suspect]
     Active Substance: TACROLIMUS
     Indication: RENAL TRANSPLANT
     Dosage: 14 MG, ONCE DAILY (4 CAPSULES OF 1 MG AND 2 CAPSULES OF 5 MG)
     Route: 048
     Dates: start: 20190129

REACTIONS (1)
  - Protein urine [Not Recovered/Not Resolved]

NARRATIVE: CASE EVENT DATE: 20190318
